FAERS Safety Report 5798397-3 (Version None)
Quarter: 2008Q3

REPORT INFORMATION
  Report Type: 
  Country: None (occurrence: None)
  Receive Date: 20080701
  Receipt Date: 20080701
  Transmission Date: 20090109
  Serious: Yes (Death)
  Sender: FDA-Public Use
  Company Number: None

PATIENT
  Age: 31 Year
  Sex: Female

DRUGS (4)
  1. PROPYL-THIOURACIL [Suspect]
     Dosage: TABLET
  2. PURINETHOL [Suspect]
     Dosage: TABLET
  3. MERCAPTOPURINE [Suspect]
     Dosage: TABLET
  4. VINATE II [Suspect]
     Dosage: TABLET

REACTIONS (9)
  - ABORTION SPONTANEOUS [None]
  - CARDIO-RESPIRATORY ARREST [None]
  - DRUG DISPENSING ERROR [None]
  - DRUG EXPOSURE DURING PREGNANCY [None]
  - FATIGUE [None]
  - MEDICATION ERROR [None]
  - PYREXIA [None]
  - SEPSIS [None]
  - WRONG DRUG ADMINISTERED [None]
